FAERS Safety Report 8756547 (Version 1)
Quarter: 2012Q4

REPORT INFORMATION
  Report Type: 
  Country: US (occurrence: US)
  Receive Date: 20120828
  Receipt Date: 20120828
  Transmission Date: 20130627
  Serious: No
  Sender: FDA-Public Use
  Company Number: 2007BI006388

PATIENT
  Age: 25 Year
  Sex: Male

DRUGS (2)
  1. TYSABRI [Suspect]
     Indication: MULTIPLE SCLEROSIS
     Route: 042
     Dates: start: 20070216, end: 20070319
  2. AVONEX [Concomitant]
     Indication: MULTIPLE SCLEROSIS
     Dates: start: 20001216, end: 2007

REACTIONS (3)
  - Somnolence [Recovered/Resolved]
  - Hypersensitivity [Recovered/Resolved]
  - Depression [Not Recovered/Not Resolved]
